FAERS Safety Report 12260555 (Version 1)
Quarter: 2016Q2

REPORT INFORMATION
  Report Type: Spontaneous
  Country: US (occurrence: US)
  Receive Date: 20160412
  Receipt Date: 20160412
  Transmission Date: 20160815
  Serious: No
  Sender: FDA-Public Use
  Company Number: US-SA-2016SA050496

PATIENT
  Age: 67 Year
  Sex: Female

DRUGS (1)
  1. ALLEGRA [Suspect]
     Active Substance: FEXOFENADINE HYDROCHLORIDE
     Indication: SEASONAL ALLERGY
     Dosage: FORM: GELATIN CAPSULE
     Route: 065
     Dates: start: 20160307

REACTIONS (5)
  - Drug ineffective [Unknown]
  - Sneezing [Unknown]
  - Lacrimation increased [Unknown]
  - Lip dry [Unknown]
  - Dry mouth [Unknown]

NARRATIVE: CASE EVENT DATE: 20160308
